FAERS Safety Report 5503259-2 (Version None)
Quarter: 2007Q4

REPORT INFORMATION
  Report Type: 
  Country: None (occurrence: None)
  Receive Date: 20071031
  Receipt Date: 20071018
  Transmission Date: 20080405
  Serious: Yes (Hospitalization)
  Sender: FDA-Public Use
  Company Number: US-GENENTECH-247702

PATIENT
  Sex: Male
  Weight: 81.633 kg

DRUGS (1)
  1. BEVACIZUMAB [Suspect]
     Indication: DRUG USE FOR UNKNOWN INDICATION
     Dosage: 5 MG/KG, DAYS 1+15
     Route: 042
     Dates: start: 20070613, end: 20070731

REACTIONS (1)
  - SUPRAVENTRICULAR TACHYCARDIA [None]
